FAERS Safety Report 24788098 (Version 2)
Quarter: 2025Q1

REPORT INFORMATION
  Report Type: Spontaneous
  Country: CH (occurrence: None)
  Receive Date: 20241230
  Receipt Date: 20250117
  Transmission Date: 20250408
  Serious: Yes (Other)
  Sender: INFORLIFE
  Company Number: CH-INFO-20240390

PATIENT
  Age: 60 Year
  Sex: Male
  Weight: 75 kg

DRUGS (7)
  1. ACETAMINOPHEN [Interacting]
     Active Substance: ACETAMINOPHEN
     Indication: Pain
     Dosage: 4X500 MG P.O. DAILY
     Route: 048
  2. FLUCLOXACILLIN [Interacting]
     Active Substance: FLUCLOXACILLIN
     Indication: Psoas abscess
     Dosage: WEEKS OF TREATMENT
     Route: 040
  3. KETAMINE [Concomitant]
     Active Substance: KETAMINE
     Indication: Pain
  4. METAMIZOLE [Concomitant]
     Active Substance: METAMIZOLE
     Indication: Pain
     Dosage: 4X500 MG P.O. DAILY
     Route: 048
  5. OXYCODONE [Concomitant]
     Active Substance: OXYCODONE
     Indication: Pain
  6. PREDNISONE [Concomitant]
     Active Substance: PREDNISONE
     Indication: Rheumatoid arthritis
  7. PREDNISONE [Concomitant]
     Active Substance: PREDNISONE
     Indication: Rheumatoid arthritis

REACTIONS (2)
  - Metabolic acidosis [Recovered/Resolved]
  - Drug interaction [Recovered/Resolved]
